FAERS Safety Report 7733547-0 (Version None)
Quarter: 2011Q3

REPORT INFORMATION
  Report Type: 
  Country: None (occurrence: None)
  Receive Date: 20110901
  Receipt Date: 20110422
  Transmission Date: 20111222
  Serious: Yes (Hospitalization)
  Sender: FDA-Public Use
  Company Number: 1000020670

PATIENT
  Age: 51 Year
  Sex: Female

DRUGS (3)
  1. CLORAZEPATE (CLORAZEPATE DIPOTASSIUM) (CLORAZEPATE) [Concomitant]
  2. MILNACIPRAN (MILNACIPRAN HYDROCHLORIDE) (CAPSULES) [Suspect]
  3. ZOPICLONE (ZOPICLONE) (ZOPICLONE) [Concomitant]

REACTIONS (9)
  - ELECTROCARDIOGRAM QT PROLONGED [None]
  - OVERDOSE [None]
  - COMA [None]
  - BRADYPNOEA [None]
  - HEART RATE DECREASED [None]
  - BLOOD PRESSURE DECREASED [None]
  - TOXICITY TO VARIOUS AGENTS [None]
  - EXTRAPYRAMIDAL DISORDER [None]
  - MIOSIS [None]
